FAERS Safety Report 15338094 (Version 1)
Quarter: 2018Q3

REPORT INFORMATION
  Report Type: Spontaneous
  Country: DE (occurrence: DE)
  Receive Date: 20180831
  Receipt Date: 20180831
  Transmission Date: 20181010
  Serious: Yes (Other)
  Sender: FDA-Public Use
  Company Number: DE-BION-007382

PATIENT
  Age: 38 Year
  Sex: Female

DRUGS (1)
  1. VALPROIC ACID. [Suspect]
     Active Substance: VALPROIC ACID
     Indication: BIPOLAR DISORDER

REACTIONS (9)
  - Dizziness [Unknown]
  - Headache [Unknown]
  - Overdose [Unknown]
  - Sleep disorder [Unknown]
  - Visual impairment [Unknown]
  - Withdrawal syndrome [Recovered/Resolved]
  - Self-injurious ideation [Recovered/Resolved]
  - Weight increased [Unknown]
  - Impulsive behaviour [Recovered/Resolved]
